FAERS Safety Report 8312977-2 (Version None)
Quarter: 2012Q2

REPORT INFORMATION
  Report Type: 
  Country: None (occurrence: None)
  Receive Date: 20120426
  Receipt Date: 20120416
  Transmission Date: 20120825
  Serious: Yes (Other)
  Sender: FDA-Public Use
  Company Number: CA-JNJFOC-20120407159

PATIENT
  Sex: Female
  Weight: 58 kg

DRUGS (7)
  1. CADUET [Concomitant]
     Route: 065
  2. AZATHIOPRINE [Concomitant]
     Route: 065
  3. QUETIAPINE [Concomitant]
     Route: 048
  4. REMICADE [Suspect]
     Indication: ANKYLOSING SPONDYLITIS
     Route: 042
     Dates: start: 20090825
  5. PRILOSEC [Concomitant]
     Route: 065
  6. VENLAFAXINE [Concomitant]
     Route: 065
  7. REMICADE [Suspect]
     Indication: COLITIS ULCERATIVE
     Route: 042
     Dates: start: 20090825

REACTIONS (1)
  - JOINT SURGERY [None]
